FAERS Safety Report 20123173 (Version 1)
Quarter: 2021Q4

REPORT INFORMATION
  Report Type: Spontaneous
  Country: US (occurrence: US)
  Receive Date: 20211129
  Receipt Date: 20211129
  Transmission Date: 20220303
  Serious: No
  Sender: FDA-Public Use
  Company Number: US-LUPIN PHARMACEUTICALS INC.-2021-23089

PATIENT

DRUGS (2)
  1. ESCITALOPRAM [Suspect]
     Active Substance: ESCITALOPRAM OXALATE
     Indication: Depression
     Dosage: 12.5 MILLIGRAM, QD, LATER, DOSE WAS INCREASED
     Route: 065
  2. ESCITALOPRAM [Suspect]
     Active Substance: ESCITALOPRAM OXALATE
     Dosage: UNK (DOSE WAS INCREASED)
     Route: 065

REACTIONS (3)
  - Irritability [Unknown]
  - Fatigue [Unknown]
  - Tearfulness [Unknown]
